FAERS Safety Report 5379123-9 (Version None)
Quarter: 2007Q3

REPORT INFORMATION
  Report Type: 
  Country: None (occurrence: None)
  Receive Date: 20070705
  Receipt Date: 20070622
  Transmission Date: 20080115
  Serious: Yes (Hospitalization)
  Sender: FDA-Public Use
  Company Number: ES-ELI_LILLY_AND_COMPANY-ES200706005428

PATIENT
  Age: 64 Year
  Sex: Female

DRUGS (2)
  1. CYMBALTA [Suspect]
     Indication: DEPRESSION
     Dosage: 60 MG, UNKNOWN
     Route: 048
     Dates: start: 20070401, end: 20070601
  2. TRAZODONE HCL [Concomitant]
     Dosage: 100 MG, UNKNOWN
     Route: 065
     Dates: end: 20070601

REACTIONS (1)
  - RHABDOMYOLYSIS [None]
